FAERS Safety Report 19753551 (Version 1)
Quarter: 2021Q3

REPORT INFORMATION
  Report Type: Spontaneous
  Country: US (occurrence: US)
  Receive Date: 20210826
  Receipt Date: 20210826
  Transmission Date: 20211014
  Serious: No
  Sender: FDA-Public Use
  Company Number: None

PATIENT
  Age: 35 Year
  Sex: Male
  Weight: 63.4 kg

DRUGS (1)
  1. INFLECTRA [Suspect]
     Active Substance: INFLIXIMAB-DYYB
     Indication: CROHN^S DISEASE
     Dosage: ?          OTHER FREQUENCY:EVERY 2 WEEKS X 2;?
     Route: 041

REACTIONS (6)
  - Cough [None]
  - Dizziness [None]
  - Presyncope [None]
  - Aggression [None]
  - Throat tightness [None]
  - Infusion related reaction [None]

NARRATIVE: CASE EVENT DATE: 20210818
